FAERS Safety Report 20526967 (Version 3)
Quarter: 2022Q2

REPORT INFORMATION
  Report Type: Report from Study
  Country: US (occurrence: US)
  Receive Date: 20220228
  Receipt Date: 20220418
  Transmission Date: 20220720
  Serious: No
  Sender: FDA-Public Use
  Company Number: US-SA-SAC20220221001589

PATIENT
  Age: 29 Year
  Sex: Female

DRUGS (2)
  1. DUPIXENT [Suspect]
     Active Substance: DUPILUMAB
     Indication: Asthma
     Dosage: 600 MG, 1X
     Route: 058
     Dates: start: 20210202, end: 20210202
  2. DUPIXENT [Suspect]
     Active Substance: DUPILUMAB
     Dosage: 300 MG, QOW
     Route: 058
     Dates: end: 20220307

REACTIONS (8)
  - Dermatitis allergic [Unknown]
  - Burning sensation [Unknown]
  - Skin irritation [Unknown]
  - Dermatitis [Unknown]
  - Skin exfoliation [Unknown]
  - Erythema [Unknown]
  - Product dose omission in error [Unknown]
  - Drug effect less than expected [Unknown]
